FAERS Safety Report 8485424-8 (Version None)
Quarter: 2012Q3

REPORT INFORMATION
  Report Type: 
  Country: None (occurrence: None)
  Receive Date: 20120703
  Receipt Date: 20120629
  Transmission Date: 20120928
  Serious: Yes (Other)
  Sender: FDA-Public Use
  Company Number: PHHY2012BR046734

PATIENT
  Sex: Male
  Weight: 79 kg

DRUGS (5)
  1. BAMIFIX [Concomitant]
     Indication: LUNG DISORDER
     Dosage: 600 MG, DAILY
     Route: 048
  2. SIMVASTATIN [Concomitant]
     Indication: BLOOD CHOLESTEROL
     Dosage: 10 MG, DAILY
     Route: 048
  3. TAPAZOL [Concomitant]
     Indication: THYROID DISORDER
     Dosage: 50 MG, DAILY
     Route: 048
  4. DIOVAN HCT [Suspect]
     Indication: HYPERTENSION
     Dosage: 1 DF (160/25 MG), A DAY
     Route: 048
  5. TAMSULOSIN HCL [Concomitant]
     Indication: PROSTATIC DISORDER
     Dosage: 4 MG, DAILY
     Route: 048

REACTIONS (5)
  - CHOLELITHIASIS [None]
  - BLOOD PRESSURE INCREASED [None]
  - ABDOMINAL PAIN [None]
  - THYROID DISORDER [None]
  - PROSTATE INFECTION [None]
